FAERS Safety Report 6615682-3 (Version None)
Quarter: 2010Q1

REPORT INFORMATION
  Report Type: 
  Country: None (occurrence: None)
  Receive Date: 20100226
  Receipt Date: 20100212
  Transmission Date: 20100710
  Serious: Yes (Hospitalization)
  Sender: FDA-Public Use
  Company Number: 2010AL000294

PATIENT
  Age: 67 Year
  Sex: Male

DRUGS (7)
  1. TEMAZEPAM [Suspect]
     Indication: INSOMNIA
     Dosage: 10 MG; PO
     Route: 048
     Dates: start: 20071206, end: 20071207
  2. ACETYLSALICYLIC ACID SRT [Concomitant]
  3. SIMVASTATIN [Concomitant]
  4. COVERSYL [Concomitant]
  5. FLUOXETINE [Concomitant]
  6. CETIRIZINE [Concomitant]
  7. EFFEXOR XR [Concomitant]

REACTIONS (4)
  - FALL [None]
  - HEAD INJURY [None]
  - LOSS OF CONSCIOUSNESS [None]
  - SWELLING [None]
